FAERS Safety Report 9243219 (Version 2)
Quarter: 2013Q2

REPORT INFORMATION
  Report Type: Spontaneous
  Country: US (occurrence: US)
  Receive Date: 20130419
  Receipt Date: 20130502
  Transmission Date: 20140414
  Serious: Yes (Hospitalization)
  Sender: FDA-Public Use
  Company Number: US-GILEAD-2013-0073795

PATIENT
  Age: 80 Year
  Sex: Female

DRUGS (1)
  1. LETAIRIS [Suspect]
     Indication: PULMONARY FIBROSIS
     Dosage: 5 MG, QD
     Route: 048
     Dates: start: 20130324, end: 20130406

REACTIONS (2)
  - Dyspnoea [Unknown]
  - Swelling [Unknown]
